FAERS Safety Report 8967612 (Version 1)
Quarter: 2012Q4

REPORT INFORMATION
  Report Type: 
  Country: GB (occurrence: GB)
  Receive Date: 20121214
  Receipt Date: 20121214
  Transmission Date: 20130627
  Serious: Yes (Death, Hospitalization)
  Sender: FDA-Public Use
  Company Number: GB-PFIZER INC-2012310400

PATIENT
  Age: 39 Year
  Sex: Male

DRUGS (5)
  1. SULFASALAZINE [Suspect]
     Indication: PROCTITIS
     Dosage: 1 g, 2x/day
     Route: 048
     Dates: start: 1977, end: 1977
  2. SULFASALAZINE [Suspect]
     Indication: ULCERATIVE COLITIS
     Dosage: 2 g, 4x/day
     Route: 048
     Dates: start: 1977, end: 1977
  3. SULFASALAZINE [Suspect]
     Dosage: 1 g, 4x/day
     Route: 048
     Dates: start: 19770517, end: 19770608
  4. HYDROCORTISONE [Concomitant]
     Dosage: UNK
  5. PREDNISOLONE [Concomitant]
     Dosage: 15 mg, 1x/day
     Route: 048

REACTIONS (3)
  - Toxic epidermal necrolysis [Fatal]
  - Agranulocytosis [Fatal]
  - Bone marrow failure [Fatal]
